FAERS Safety Report 6081695-6 (Version None)
Quarter: 2009Q1

REPORT INFORMATION
  Report Type: 
  Country: None (occurrence: None)
  Receive Date: 20090130
  Receipt Date: 20080108
  Transmission Date: 20090719
  Serious: Yes (Other)
  Sender: FDA-Public Use
  Company Number: US-WYE-H02024408

PATIENT
  Age: 80 Year
  Sex: Female

DRUGS (4)
  1. CORDARONE [Suspect]
     Indication: ATRIAL FIBRILLATION
     Dosage: 2000 MG 1X PER 1 DAY, ORAL
     Route: 048
     Dates: start: 20071201
  2. DIOVAN [Concomitant]
  3. LASIX [Concomitant]
  4. ATENOLOL [Concomitant]

REACTIONS (1)
  - PULMONARY TOXICITY [None]
